FAERS Safety Report 6558326-1 (Version None)
Quarter: 2010Q1

REPORT INFORMATION
  Report Type: 
  Country: None (occurrence: None)
  Receive Date: 20100128
  Receipt Date: 20100128
  Transmission Date: 20100710
  Serious: Yes (Other)
  Sender: FDA-Public Use
  Company Number: None

PATIENT
  Sex: Female
  Weight: 90.7194 kg

DRUGS (8)
  1. METOCLOPRAMIDE [Suspect]
     Indication: IMPAIRED GASTRIC EMPTYING
     Dosage: 5 MGM Q HS PO
     Route: 048
     Dates: start: 19970101
  2. FLUOXETINE [Concomitant]
  3. WELLBUTRIN [Concomitant]
  4. XANAX XR [Concomitant]
  5. LOTREL [Concomitant]
  6. LIPITOR [Concomitant]
  7. HYDROCODONE [Concomitant]
  8. DETROL LA [Concomitant]

REACTIONS (2)
  - HALLUCINATION, AUDITORY [None]
  - MIDDLE INSOMNIA [None]
